FAERS Safety Report 8293996-1 (Version None)
Quarter: 2012Q2

REPORT INFORMATION
  Report Type: 
  Country: None (occurrence: None)
  Receive Date: 20120413
  Receipt Date: 20120315
  Transmission Date: 20120825
  Serious: Yes (Other)
  Sender: FDA-Public Use
  Company Number: GGEL20120300334

PATIENT
  Age: 17 Year
  Sex: Female

DRUGS (2)
  1. NORGESTIMATE AND ETHINYL ESTRADIOL [Suspect]
     Indication: ORAL CONTRACEPTION
     Dosage: 1 IN 1 D, ORAL
     Route: 048
     Dates: start: 20120226
  2. ZOLOFT [Concomitant]

REACTIONS (4)
  - POLYMENORRHOEA [None]
  - VAGINAL HAEMORRHAGE [None]
  - HAEMATOCHEZIA [None]
  - PRODUCT QUALITY ISSUE [None]
